FAERS Safety Report 21199975 (Version 1)
Quarter: 2022Q3

REPORT INFORMATION
  Report Type: Spontaneous
  Country: US (occurrence: None)
  Receive Date: 20220810
  Receipt Date: 20220810
  Transmission Date: 20221027
  Serious: No
  Sender: FDA-Public Use
  Company Number: None

PATIENT
  Age: 60 Year
  Sex: Female
  Weight: 60.75 kg

DRUGS (1)
  1. PAXLOVID [Suspect]
     Active Substance: NIRMATRELVIR\RITONAVIR
     Indication: COVID-19
     Dates: start: 20220729, end: 20220731

REACTIONS (5)
  - Vomiting projectile [None]
  - Diarrhoea [None]
  - Weight decreased [None]
  - Fatigue [None]
  - COVID-19 [None]

NARRATIVE: CASE EVENT DATE: 20220729
